FAERS Safety Report 8746106 (Version 2)
Quarter: 2012Q4

REPORT INFORMATION
  Report Type: 
  Country: IE (occurrence: IE)
  Receive Date: 20120827
  Receipt Date: 20120923
  Transmission Date: 20130627
  Serious: Yes (Other)
  Sender: FDA-Public Use
  Company Number: IE-US-EMD SERONO, INC.-7155939

PATIENT
  Sex: Male

DRUGS (1)
  1. SAIZEN [Suspect]
     Indication: PRODUCT USED FOR UNKNOWN INDICATION
     Route: 058

REACTIONS (1)
  - Brain neoplasm [Not Recovered/Not Resolved]
